FAERS Safety Report 4301549-2 (Version None)
Quarter: 2004Q1

REPORT INFORMATION
  Report Type: 
  Country: None (occurrence: None)
  Receive Date: 20040219
  Receipt Date: 20040202
  Transmission Date: 20041129
  Serious: Yes (Hospitalization)
  Sender: FDA-Public Use
  Company Number: 7384

PATIENT
  Age: 58 Year
  Sex: Male

DRUGS (9)
  1. METHOTREXATE [Suspect]
     Indication: RHEUMATOID ARTHRITIS
     Dosage: 20 MG WEEKLY SC
     Route: 058
     Dates: start: 20031017
  2. METHOTREXATE [Suspect]
     Indication: RHEUMATOID ARTHRITIS
     Dosage: 20 MG WEEKLY SC
     Route: 058
     Dates: start: 20021009, end: 20030909
  3. ENBREL [Suspect]
     Indication: RHEUMATOID ARTHRITIS
     Dosage: 25 MG 2/WK SC
     Route: 058
     Dates: start: 20031017
  4. ENBREL [Suspect]
     Indication: RHEUMATOID ARTHRITIS
     Dosage: 25 MG 2/WK SC
     Route: 058
     Dates: start: 20030522, end: 20030909
  5. FOSAMAX [Concomitant]
  6. FLEXERIL [Concomitant]
  7. NEXIUM [Concomitant]
  8. CELEBREX [Concomitant]
  9. VICODIN [Concomitant]

REACTIONS (1)
  - URINARY TRACT INFECTION [None]
